FAERS Safety Report 8006187-6 (Version None)
Quarter: 2011Q4

REPORT INFORMATION
  Report Type: 
  Country: None (occurrence: None)
  Receive Date: 20111226
  Receipt Date: 20111221
  Transmission Date: 20120403
  Serious: Yes (Death)
  Sender: FDA-Public Use
  Company Number: PHHY2011NL111465

PATIENT
  Sex: Female

DRUGS (2)
  1. ZOMETA [Suspect]
     Dosage: 4 MG, / 5 ML ONCE IN 42 DAYS
     Dates: start: 20111117
  2. ZOMETA [Suspect]
     Indication: LUNG CANCER METASTATIC
     Dosage: 4 MG, / 5 ML ONCE IN 42 DAYS
     Dates: start: 20111012

REACTIONS (1)
  - DEATH [None]
